FAERS Safety Report 5626278-4 (Version None)
Quarter: 2008Q1

REPORT INFORMATION
  Report Type: 
  Country: None (occurrence: None)
  Receive Date: 20080213
  Receipt Date: 20080213
  Transmission Date: 20080703
  Serious: Yes (Other)
  Sender: FDA-Public Use
  Company Number: None

PATIENT
  Sex: Male
  Weight: 87.0906 kg

DRUGS (1)
  1. ZETIA [Suspect]
     Dosage: 1 TABLET DAILY 047

REACTIONS (2)
  - ABASIA [None]
  - MUSCLE SPASMS [None]
